FAERS Safety Report 19169578 (Version 1)
Quarter: 2021Q2

REPORT INFORMATION
  Report Type: Report from Study
  Country: None (occurrence: PT)
  Receive Date: 20210422
  Receipt Date: 20210422
  Transmission Date: 20210717
  Serious: Yes (Other)
  Sender: FDA-Public Use
  Company Number: PT-BAUSCH-BL-2021-012675

PATIENT
  Age: 0 Year
  Sex: Male

DRUGS (1)
  1. GENTAMICIN. [Suspect]
     Active Substance: GENTAMICIN
     Indication: PRODUCT USED FOR UNKNOWN INDICATION
     Route: 065

REACTIONS (2)
  - Deafness neurosensory [Unknown]
  - Auditory neuropathy spectrum disorder [Unknown]
